FAERS Safety Report 14640688 (Version 1)
Quarter: 2018Q1

REPORT INFORMATION
  Report Type: Spontaneous
  Country: US (occurrence: US)
  Receive Date: 20180315
  Receipt Date: 20180315
  Transmission Date: 20180509
  Serious: No
  Sender: FDA-Public Use
  Company Number: US-GLAXOSMITHKLINE-US2018GSK043550

PATIENT
  Sex: Female

DRUGS (8)
  1. FLOVENT DISKUS [Suspect]
     Active Substance: FLUTICASONE PROPIONATE
     Indication: ASTHMA
     Dosage: 1 PUFF(S), BID
  2. SINGULAIR [Concomitant]
     Active Substance: MONTELUKAST SODIUM
  3. LIPITOR [Concomitant]
     Active Substance: ATORVASTATIN CALCIUM
  4. CALCIUM [Concomitant]
     Active Substance: CALCIUM
  5. LEXAPRO [Concomitant]
     Active Substance: ESCITALOPRAM OXALATE
  6. ESTRADIOL. [Concomitant]
     Active Substance: ESTRADIOL
  7. VITAMIN C [Concomitant]
     Active Substance: ASCORBIC ACID
  8. LORATADINE. [Concomitant]
     Active Substance: LORATADINE

REACTIONS (10)
  - Cough [Recovered/Resolved]
  - Sensory disturbance [Recovered/Resolved]
  - Discomfort [Recovered/Resolved]
  - Therapeutic response decreased [Recovered/Resolved]
  - Dyspnoea [Recovered/Resolved]
  - Increased upper airway secretion [Recovered/Resolved]
  - Sputum retention [Recovered/Resolved]
  - Dizziness [Recovered/Resolved]
  - Underdose [Recovered/Resolved]
  - Wrong technique in product usage process [Recovered/Resolved]
